FAERS Safety Report 12766830 (Version 1)
Quarter: 2016Q3

REPORT INFORMATION
  Report Type: Spontaneous
  Country: US (occurrence: US)
  Receive Date: 20160921
  Receipt Date: 20160921
  Transmission Date: 20161109
  Serious: No
  Sender: FDA-Public Use
  Company Number: US-009507513-1609USA008092

PATIENT
  Sex: Female
  Weight: 58.97 kg

DRUGS (2)
  1. ZOCOR [Suspect]
     Active Substance: SIMVASTATIN
     Dosage: 10 MG, SHE TAKES IT ONE OR TWO A WEEK
     Route: 048
  2. ZOCOR [Suspect]
     Active Substance: SIMVASTATIN
     Dosage: 10 MG, ALL THE WAY
     Route: 048

REACTIONS (2)
  - Off label use [Unknown]
  - Pain [Recovered/Resolved]
